FAERS Safety Report 18974378 (Version 2)
Quarter: 2021Q3

REPORT INFORMATION
  Report Type: Report from Study
  Country: RU (occurrence: RU)
  Receive Date: 20210305
  Receipt Date: 20210705
  Transmission Date: 20211014
  Serious: Yes (Other)
  Sender: FDA-Public Use
  Company Number: RU-AMGEN-RUSNI2019172660

PATIENT
  Age: 62 Year
  Sex: Male
  Weight: 63 kg

DRUGS (4)
  1. OXALIPLATIN. [Concomitant]
     Active Substance: OXALIPLATIN
     Indication: COLORECTAL CANCER METASTATIC
     Dosage: UNK
     Dates: start: 20190415, end: 20190603
  2. PANITUMUMAB [Suspect]
     Active Substance: PANITUMUMAB
     Indication: COLORECTAL CANCER METASTATIC
     Dosage: 402 MILLIGRAM
     Route: 042
     Dates: start: 20181102
  3. GLICLAZIDE [Concomitant]
     Active Substance: GLICLAZIDE
     Dosage: 160 MILLIGRAM
     Route: 048
     Dates: start: 20150101, end: 20190909
  4. PANITUMUMAB [Suspect]
     Active Substance: PANITUMUMAB
     Dosage: 400 MILLIGRAM
     Route: 042

REACTIONS (2)
  - Neutropenia [Recovered/Resolved]
  - Skin toxicity [Recovered/Resolved]

NARRATIVE: CASE EVENT DATE: 20190226
